FAERS Safety Report 18525368 (Version 1)
Quarter: 2020Q4

REPORT INFORMATION
  Report Type: Spontaneous
  Country: US (occurrence: US)
  Receive Date: 20201120
  Receipt Date: 20201120
  Transmission Date: 20210114
  Serious: Yes (Death)
  Sender: FDA-Public Use
  Company Number: US-ROCHE-2716779

PATIENT
  Sex: Male

DRUGS (1)
  1. ESBRIET [Suspect]
     Active Substance: PIRFENIDONE
     Indication: IDIOPATHIC PULMONARY FIBROSIS
     Dosage: TAKE 1 TAB 3 TIME DAILY FOR 1 WEEK, TAKE 2 TAB 3 TIMES DAILY FOR 1 WEEK, THEN 3 TAB 3 TIMES DAILY WI
     Route: 048
     Dates: start: 202005

REACTIONS (1)
  - Death [Fatal]
